FAERS Safety Report 20650814 (Version 1)
Quarter: 2022Q1

REPORT INFORMATION
  Report Type: Spontaneous
  Country: US (occurrence: US)
  Receive Date: 20220329
  Receipt Date: 20220329
  Transmission Date: 20220423
  Serious: Yes (Other)
  Sender: FDA-Public Use
  Company Number: US-PFIZER INC-202200484315

PATIENT
  Age: 80 Year

DRUGS (1)
  1. XELJANZ XR [Suspect]
     Active Substance: TOFACITINIB CITRATE
     Dosage: UNK

REACTIONS (6)
  - Cataract [Unknown]
  - Rheumatoid arthritis [Unknown]
  - Acne [Unknown]
  - Eczema [Unknown]
  - Dermatitis [Unknown]
  - Stress [Unknown]
